FAERS Safety Report 8514886-2 (Version None)
Quarter: 2012Q3

REPORT INFORMATION
  Report Type: 
  Country: None (occurrence: None)
  Receive Date: 20120717
  Receipt Date: 20120717
  Transmission Date: 20120928
  Serious: Yes (Death, Other)
  Sender: FDA-Public Use
  Company Number: US-PFIZER INC-2012136972

PATIENT
  Sex: Female

DRUGS (1)
  1. RAPAMUNE [Suspect]
     Indication: LYMPHANGIOSARCOMA
     Dosage: 1.5 ML, 1X/DAY
     Route: 048

REACTIONS (2)
  - DISEASE PROGRESSION [None]
  - LYMPHANGIOSARCOMA [None]
